FAERS Safety Report 6960692-X (Version None)
Quarter: 2010Q3

REPORT INFORMATION
  Report Type: 
  Country: None (occurrence: None)
  Receive Date: 20100823
  Receipt Date: 20100607
  Transmission Date: 20110219
  Serious: No
  Sender: FDA-Public Use
  Company Number: 015213

PATIENT
  Sex: Female
  Weight: 95 kg

DRUGS (3)
  1. CIMZIA [Suspect]
     Indication: RHEUMATOID ARTHRITIS
     Dosage: (200 MG 1X/2 WEEKS SUBCUTANEOUS)
     Route: 058
     Dates: start: 20090101, end: 20100601
  2. METHOTREXATE [Concomitant]
  3. VITAMIN TAB [Concomitant]

REACTIONS (1)
  - DRUG INEFFECTIVE [None]
